FAERS Safety Report 5897542-9 (Version None)
Quarter: 2008Q3

REPORT INFORMATION
  Report Type: 
  Country: None (occurrence: None)
  Receive Date: 20080925
  Receipt Date: 20080922
  Transmission Date: 20090109
  Serious: Yes (Hospitalization, Disabling)
  Sender: FDA-Public Use
  Company Number: FRWYE411020FEB06

PATIENT
  Sex: Male

DRUGS (1)
  1. SIROLIMUS [Suspect]
     Indication: NEOPLASM PROPHYLAXIS
     Route: 048
     Dates: start: 20051103, end: 20060306

REACTIONS (5)
  - ASTHENIA [None]
  - ATRIAL FLUTTER [None]
  - PLEURAL EFFUSION [None]
  - PNEUMONIA [None]
  - PROTEINURIA [None]
